FAERS Safety Report 9035117 (Version 1)
Quarter: 2013Q1

REPORT INFORMATION
  Report Type: Report from Study
  Country: US (occurrence: US)
  Receive Date: 20130129
  Receipt Date: 20130129
  Transmission Date: 20140127
  Serious: Yes (Hospitalization, Other)
  Sender: FDA-Public Use
  Company Number: US-ABBOTT-12P-163-0895269-00

PATIENT
  Sex: Male
  Weight: 74.91 kg

DRUGS (1)
  1. HUMIRA 40 MG/0.8 ML PEN [Suspect]
     Indication: PSORIASIS
     Route: 058
     Dates: start: 200808, end: 201010

REACTIONS (6)
  - Colorectal adenocarcinoma [Unknown]
  - Painful defaecation [Recovered/Resolved]
  - Basal cell carcinoma [Recovered/Resolved]
  - Clostridium difficile infection [Recovered/Resolved]
  - Scan abnormal [Unknown]
  - Psoriasis [Not Recovered/Not Resolved]
